FAERS Safety Report 10085826 (Version 1)
Quarter: 2014Q2

REPORT INFORMATION
  Report Type: Spontaneous
  Country: None (occurrence: None)
  Receive Date: 20140416
  Receipt Date: 20140416
  Transmission Date: 20141212
  Serious: Yes (Hospitalization)
  Sender: FDA-Public Use
  Company Number: 08-AUR-04318

PATIENT
  Age: 64 Year
  Sex: Male

DRUGS (9)
  1. ATENOLOL (ATENOLOL) [Suspect]
     Indication: PRODUCT USED FOR UNKNOWN INDICATION
  2. CO-PROXAMOL (PARACETAMOL, DEXTROPROPOXYPHENE) [Suspect]
     Indication: PRODUCT USED FOR UNKNOWN INDICATION
  3. ENBREL (ETANERCEPT) [Suspect]
     Indication: RHEUMATOID ARTHRITIS
     Dosage: 25 MG, 2 IN 1 WK
  4. METHOTREXATE (METHOTREXATE) [Suspect]
     Indication: PRODUCT USED FOR UNKNOWN INDICATION
  5. PREDNISOLONE (PREDNISOLONE) [Suspect]
     Indication: PRODUCT USED FOR UNKNOWN INDICATION
  6. VIOXX (ROFECOXIB) [Suspect]
     Indication: PRODUCT USED FOR UNKNOWN INDICATION
  7. CALCIUM [Concomitant]
  8. GLICLAZIDE [Concomitant]
  9. VITAMIN [Concomitant]

REACTIONS (1)
  - Colonic fistula [None]
